FAERS Safety Report 16269699 (Version 1)
Quarter: 2019Q2

REPORT INFORMATION
  Report Type: Spontaneous
  Country: US (occurrence: US)
  Receive Date: 20190503
  Receipt Date: 20190503
  Transmission Date: 20190711
  Serious: No
  Sender: FDA-Public Use
  Company Number: US-PFIZER INC-2019184127

PATIENT
  Age: 60 Year
  Sex: Female
  Weight: 92.35 kg

DRUGS (25)
  1. CELEBREX [Suspect]
     Active Substance: CELECOXIB
     Dosage: UNK
  2. LISINOPRIL. [Concomitant]
     Active Substance: LISINOPRIL
     Dosage: 2.5 MG, 1X/DAY
     Route: 048
  3. ACETAMINOPHEN. [Concomitant]
     Active Substance: ACETAMINOPHEN
     Indication: PAIN
     Dosage: 1000 MG, 2X/DAY
     Route: 048
  4. SUMATRIPTAN SUCCINATE. [Concomitant]
     Active Substance: SUMATRIPTAN SUCCINATE
     Dosage: 100 MG, AS NEEDED (1 TABLET AS NEEDED ORALLY TWICE A DAY)
     Route: 048
  5. ATORVASTATIN CALCIUM. [Concomitant]
     Active Substance: ATORVASTATIN CALCIUM
     Dosage: 40 MG, 1X/DAY
     Route: 048
  6. FLUTICASONE FUROATE [Concomitant]
     Active Substance: FLUTICASONE FUROATE
     Dosage: UNK, 1X/DAY (ACTIVATED 2 PUFFS INHALATION ONCE A DAY)
  7. AMOXICILLIN. [Concomitant]
     Active Substance: AMOXICILLIN
     Dosage: 875 MG, 2X/DAY (1 TABLET ORALLY EVERY 12 HRS)
     Route: 048
  8. TYLENOL [Concomitant]
     Active Substance: ACETAMINOPHEN
     Indication: HEADACHE
     Dosage: UNK
  9. MOBIC [Suspect]
     Active Substance: MELOXICAM
     Dosage: UNK
  10. NAPROXEN. [Concomitant]
     Active Substance: NAPROXEN
     Indication: HEADACHE
  11. PANTOPRAZOLE SODIUM. [Concomitant]
     Active Substance: PANTOPRAZOLE SODIUM
     Indication: PROPHYLAXIS
     Dosage: 40 MG, 1X/DAY
     Route: 048
  12. METHOTREXATE. [Concomitant]
     Active Substance: METHOTREXATE
     Dosage: 2.5 MG, UNK (6 TABLETS ORALLY ONCE A WEEK)
     Route: 048
  13. METHOTREXATE. [Concomitant]
     Active Substance: METHOTREXATE
     Dosage: 20 MG, WEEKLY
  14. DULOXETINE HCL [Concomitant]
     Active Substance: DULOXETINE HYDROCHLORIDE
     Indication: OSTEOARTHRITIS
     Dosage: 60 MG, 1X/DAY
     Route: 048
  15. CLOBETASOL PROPIONATE E [Concomitant]
     Dosage: UNK, 2X/DAY(APPLICATION TO AFFECTED AREA EXTERNALLY TWICE A DAY)
  16. VITAMIN D [ERGOCALCIFEROL] [Concomitant]
     Active Substance: ERGOCALCIFEROL
     Dosage: 50000 IU, WEEKLY (1 CAPSULE ORALLY ONCE A WEEK)
     Route: 048
  17. ASPIRIN [ACETYLSALICYLIC ACID] [Concomitant]
     Active Substance: ASPIRIN
     Dosage: 81 MG, 1X/DAY
     Route: 048
  18. FLUTICASONE PROPIONATE. [Concomitant]
     Active Substance: FLUTICASONE PROPIONATE
     Dosage: UNK, 1X/DAY (EACH NOSTRIL NASALLY ONCE A DAY)
     Route: 045
  19. FOLIC ACID. [Concomitant]
     Active Substance: FOLIC ACID
     Dosage: 1 MG, 1X/DAY
     Route: 048
     Dates: start: 201808
  20. CETRIZINE [Concomitant]
     Active Substance: CETIRIZINE HYDROCHLORIDE
     Dosage: 10 MG, 1X/DAY
     Route: 048
  21. AMOXICILLIN. [Concomitant]
     Active Substance: AMOXICILLIN
     Dosage: 875 MG, 2X/DAY (1 TABLET ORALLY EVERY 12 HRS)
     Route: 048
  22. NAPROXEN. [Concomitant]
     Active Substance: NAPROXEN
     Indication: PROPHYLAXIS
     Dosage: 375 MG, AS NEEDED(1 TABLET WITH FOOD OR MILK AS NEEDED, ORALLY, EVERY 12 HRS, 30 DAYS, 60 TABLET)
     Route: 048
  23. NAPROXEN. [Concomitant]
     Active Substance: NAPROXEN
     Indication: PAIN
  24. TRAMADOL HCL [Concomitant]
     Active Substance: TRAMADOL HYDROCHLORIDE
     Indication: PAIN
     Dosage: 50 MG, AS NEEDED (1 TABLET AS NEEDED ORALLY EVERY 12 HRS)
     Route: 048
  25. RECLAST [Concomitant]
     Active Substance: ZOLEDRONIC ACID
     Indication: OSTEOPOROSIS
     Dosage: UNK
     Dates: start: 201804

REACTIONS (1)
  - Drug ineffective [Unknown]
